FAERS Safety Report 7701980-9 (Version None)
Quarter: 2011Q3

REPORT INFORMATION
  Report Type: 
  Country: None (occurrence: None)
  Receive Date: 20110822
  Receipt Date: 20110810
  Transmission Date: 20111222
  Serious: Yes (Other)
  Sender: FDA-Public Use
  Company Number: PHHY2010CA54414

PATIENT
  Sex: Female

DRUGS (4)
  1. CARBOCAL D 400 [Concomitant]
     Dosage: UNK UKN, UNK
  2. ZOLEDRONOC ACID [Suspect]
     Indication: OSTEOPOROSIS
     Dosage: 5 MG, UNK
     Dates: start: 20090908
  3. ZOLEDRONOC ACID [Suspect]
     Dosage: UNK UKN, UNK
     Dates: start: 20100908
  4. SERC [Concomitant]
     Dosage: UNK UKN, UNK

REACTIONS (2)
  - BLADDER CANCER [None]
  - BACK PAIN [None]
